FAERS Safety Report 4504493-0 (Version None)
Quarter: 2004Q4

REPORT INFORMATION
  Report Type: 
  Country: None (occurrence: None)
  Receive Date: 20041118
  Receipt Date: 20041112
  Transmission Date: 20050328
  Serious: Yes (Life-Threatening, Hospitalization)
  Sender: FDA-Public Use
  Company Number: GB-MERCK-0411GBR00130

PATIENT
  Age: 82 Year
  Sex: Female

DRUGS (10)
  1. VIOXX [Suspect]
     Route: 048
     Dates: start: 20010115, end: 20041001
  2. IBUPROFEN [Concomitant]
     Route: 065
  3. ALUMINUM HYDROXIDE AND MAGNESIUM TRISILICATE [Concomitant]
     Route: 065
  4. FLUTICASONE PROPIONATE [Concomitant]
     Route: 065
  5. IRBESARTAN [Concomitant]
     Route: 065
  6. ASPIRIN [Concomitant]
     Route: 065
  7. BENDROFLUMETHIAZIDE [Concomitant]
     Route: 065
  8. RANITIDINE [Concomitant]
     Route: 065
  9. SOTALOL HYDROCHLORIDE [Concomitant]
     Route: 065
  10. LERCANIDIPINE [Concomitant]
     Route: 065

REACTIONS (2)
  - CEREBROVASCULAR ACCIDENT [None]
  - MYOCARDIAL INFARCTION [None]
